FAERS Safety Report 5282277-6 (Version None)
Quarter: 2007Q1

REPORT INFORMATION
  Report Type: 
  Country: None (occurrence: None)
  Receive Date: 20070331
  Receipt Date: 20070320
  Transmission Date: 20070707
  Serious: Yes (Other)
  Sender: FDA-Public Use
  Company Number: NO-PFIZER INC-2007023091

PATIENT
  Sex: Female

DRUGS (2)
  1. PROVERA [Suspect]
     Indication: ENDOMETRIOSIS
     Route: 048
  2. IBUX [Concomitant]
     Indication: TOOTHACHE
     Dosage: FREQ:AS NEEDED

REACTIONS (11)
  - DISORIENTATION [None]
  - DIZZINESS [None]
  - FEELING ABNORMAL [None]
  - HEADACHE [None]
  - HYPOAESTHESIA [None]
  - MEMORY IMPAIRMENT [None]
  - PHOTOPHOBIA [None]
  - PRESYNCOPE [None]
  - SYNCOPE [None]
  - TRANSIENT ISCHAEMIC ATTACK [None]
  - VISION BLURRED [None]
